FAERS Safety Report 11372924 (Version 1)
Quarter: 2015Q3

REPORT INFORMATION
  Report Type: Spontaneous
  Country: US (occurrence: US)
  Receive Date: 20150811
  Receipt Date: 20150811
  Transmission Date: 20151125
  Serious: No
  Sender: FDA-Public Use
  Company Number: US-ELI_LILLY_AND_COMPANY-US201202001821

PATIENT
  Sex: Male

DRUGS (11)
  1. PROCARDIA [Concomitant]
     Active Substance: NIFEDIPINE
  2. CIALIS [Suspect]
     Active Substance: TADALAFIL
     Dosage: 5 MG, UNK
  3. CIALIS [Suspect]
     Active Substance: TADALAFIL
     Indication: ERECTILE DYSFUNCTION
     Dosage: 2.5 MG, UNK
     Dates: start: 201111, end: 201201
  4. VITAMIN C [Concomitant]
     Active Substance: ASCORBIC ACID
  5. CARVEDILOL. [Concomitant]
     Active Substance: CARVEDILOL
  6. CLONIDINE. [Concomitant]
     Active Substance: CLONIDINE
  7. CIALIS [Suspect]
     Active Substance: TADALAFIL
     Dosage: 20 MG, UNK
  8. GARLIC. [Concomitant]
     Active Substance: GARLIC
     Indication: BLOOD PRESSURE MEASUREMENT
  9. CINNAMON. [Concomitant]
     Active Substance: CINNAMON
     Indication: DIABETES MELLITUS
  10. COENZYME Q10 [Concomitant]
     Active Substance: UBIDECARENONE
  11. LISINOPRIL. [Concomitant]
     Active Substance: LISINOPRIL

REACTIONS (3)
  - Unevaluable event [Unknown]
  - Drug ineffective [Unknown]
  - Intentional product misuse [Unknown]
